FAERS Safety Report 4768148-X (Version None)
Quarter: 2005Q3

REPORT INFORMATION
  Report Type: 
  Country: None (occurrence: None)
  Receive Date: 20050908
  Receipt Date: 20050623
  Transmission Date: 20060218
  Serious: Yes (Other)
  Sender: FDA-Public Use
  Company Number: A03200501913

PATIENT
  Age: 71 Year
  Sex: Male

DRUGS (1)
  1. ELOXATIN [Suspect]
     Dosage: INTRAVENOUS NOS, A FEW MINS
     Route: 042

REACTIONS (4)
  - CHEST PAIN [None]
  - ERYTHEMA [None]
  - EYELID OEDEMA [None]
  - PHARYNGEAL OEDEMA [None]
